FAERS Safety Report 19127187 (Version 1)
Quarter: 2021Q2

REPORT INFORMATION
  Report Type: Spontaneous
  Country: US (occurrence: US)
  Receive Date: 20210413
  Receipt Date: 20210413
  Transmission Date: 20210717
  Serious: No
  Sender: FDA-Public Use
  Company Number: None

PATIENT
  Age: 41 Year
  Sex: Female

DRUGS (15)
  1. HYDROXYCHLOROQUINE 200 [Concomitant]
     Dates: start: 20191029
  2. ASPIRIN 81MG [Concomitant]
     Active Substance: ASPIRIN
     Dates: start: 20190601
  3. AZATHIOPRINE 50MG [Concomitant]
     Active Substance: AZATHIOPRINE
     Dates: start: 20190601
  4. VITAMIN D 2000 [Concomitant]
     Active Substance: VITAMIN D NOS
     Dates: start: 20201118
  5. TACROLIMUS. [Suspect]
     Active Substance: TACROLIMUS
     Indication: SYSTEMIC LUPUS ERYTHEMATOSUS
     Route: 048
     Dates: start: 20210221
  6. FAMOTADINE 20MG [Concomitant]
     Dates: start: 20210113
  7. LISINOPRIL. [Concomitant]
     Active Substance: LISINOPRIL
     Dates: start: 20201118
  8. WARFARIN 3MG [Concomitant]
     Dates: start: 20210127
  9. ATORVASTATIN 40MG [Concomitant]
     Active Substance: ATORVASTATIN
     Dates: start: 20201118
  10. FERROUS SULFATE 325 [Concomitant]
     Dates: start: 20200331
  11. ENOXAPARIN 80MG [Concomitant]
     Active Substance: ENOXAPARIN
     Dates: start: 20201104, end: 20201204
  12. MYCOPHENOLATE 500MG [Concomitant]
     Active Substance: MYCOPHENOLIC ACID
     Dates: start: 20201021
  13. PREDNISONE 5MG [Concomitant]
     Active Substance: PREDNISONE
     Dates: start: 20200207
  14. SULFAMETH/TRIM 800/160 [Concomitant]
     Dates: start: 20210127
  15. MYCOPHENOLATE 500MG [Suspect]
     Active Substance: MYCOPHENOLIC ACID

REACTIONS (1)
  - Diarrhoea [None]

NARRATIVE: CASE EVENT DATE: 20210324
